FAERS Safety Report 26169736 (Version 1)
Quarter: 2025Q4

REPORT INFORMATION
  Report Type: Spontaneous
  Country: JP (occurrence: JP)
  Receive Date: 20251217
  Receipt Date: 20251217
  Transmission Date: 20260118
  Serious: Yes (Life-Threatening)
  Sender: AMGEN
  Company Number: JP-AMGEN-JPNSP2025246843

PATIENT
  Age: 8 Decade
  Sex: Male

DRUGS (1)
  1. BLINCYTO [Suspect]
     Active Substance: BLINATUMOMAB
     Indication: B precursor type acute leukaemia
     Dosage: 28 MICROGRAM, CONTINUING, (24-HOUR CONTINUOUS INTRAVENOUS INFUSION)
     Route: 040
     Dates: start: 20240830

REACTIONS (1)
  - Prostate cancer [Unknown]
